FAERS Safety Report 21454465 (Version 1)
Quarter: 2022Q4

REPORT INFORMATION
  Report Type: Spontaneous
  Country: US (occurrence: US)
  Receive Date: 20221013
  Receipt Date: 20221013
  Transmission Date: 20230112
  Serious: Yes (Death, Hospitalization, Other)
  Sender: FDA-Public Use
  Company Number: US-AMGEN-USASP2022174120

PATIENT

DRUGS (5)
  1. FILGRASTIM [Suspect]
     Active Substance: FILGRASTIM
     Indication: Neutropenia
     Dosage: UNK
     Route: 065
  2. GEMCITABINE [Concomitant]
     Active Substance: GEMCITABINE
     Indication: Adenocarcinoma pancreas
     Dosage: 8-WEEK SYSTEMIC TREATMENT, 1000 MILLIGRAM/SQ. METER, INTRAVENOUS INFUSION ON DAYS 1, 8, 15, 29, 36,
  3. ERLOTINIB [Concomitant]
     Active Substance: ERLOTINIB
     Indication: Adenocarcinoma pancreas
     Dosage: 100 MILLIGRAM, QD, ON DAYS 1 THROUGH 43
     Route: 048
  4. CAPECITABINE [Concomitant]
     Active Substance: CAPECITABINE
     Indication: Adenocarcinoma pancreas
     Dosage: 825 MILLIGRAM/SQ. METER, BID, ON MONDAY THROUGH FRIDAY, 1000 MILLIGRAM/SQ. METER, FOR 4 CYCLES, ON D
     Route: 048
  5. OXALIPLATIN [Concomitant]
     Active Substance: OXALIPLATIN
     Indication: Adenocarcinoma pancreas
     Dosage: 130 MILLIGRAM/SQ. METER, FOR 4 CYCLES
     Route: 040

REACTIONS (9)
  - Death [Fatal]
  - Abdominal infection [Unknown]
  - Vomiting [Unknown]
  - Hepatotoxicity [Unknown]
  - Encephalopathy [Unknown]
  - Diarrhoea [Unknown]
  - Toxicity to various agents [Unknown]
  - Hypertransaminasaemia [Unknown]
  - Rash [Unknown]
